FAERS Safety Report 16649343 (Version 3)
Quarter: 2020Q2

REPORT INFORMATION
  Report Type: Spontaneous
  Country: US (occurrence: US)
  Receive Date: 20190730
  Receipt Date: 20200416
  Transmission Date: 20200713
  Serious: Yes (Other)
  Sender: FDA-Public Use
  Company Number: US-ACTELION-A-NJ2019-193490

PATIENT
  Sex: Male

DRUGS (2)
  1. TRACLEER [Suspect]
     Active Substance: BOSENTAN
     Indication: PRODUCT USED FOR UNKNOWN INDICATION
     Dosage: 62.5 MG, BID
     Route: 048
  2. SILDENAFIL. [Concomitant]
     Active Substance: SILDENAFIL

REACTIONS (3)
  - Cardiac arrest [Unknown]
  - Cardiac disorder [Not Recovered/Not Resolved]
  - Malaise [Unknown]
